FAERS Safety Report 21497151 (Version 2)
Quarter: 2022Q4

REPORT INFORMATION
  Report Type: Report from Study
  Country: US (occurrence: US)
  Receive Date: 20221023
  Receipt Date: 20221031
  Transmission Date: 20230113
  Serious: No
  Sender: FDA-Public Use
  Company Number: US-ABBVIE-4148095

PATIENT
  Sex: Male

DRUGS (1)
  1. HUMIRA [Suspect]
     Active Substance: ADALIMUMAB
     Indication: Crohn^s disease
     Dosage: 160MG DAY 1, 80MG DAY 15, 40MG DAY 29
     Route: 058
     Dates: start: 202111

REACTIONS (3)
  - Depressed mood [Unknown]
  - Flatulence [Unknown]
  - Anxiety [Unknown]
